FAERS Safety Report 24596697 (Version 2)
Quarter: 2025Q2

REPORT INFORMATION
  Report Type: Spontaneous
  Country: US (occurrence: US)
  Receive Date: 20241110
  Receipt Date: 20250510
  Transmission Date: 20250716
  Serious: No
  Sender: SANOFI AVENTIS
  Company Number: US-SA-2024SA306589

PATIENT
  Age: 38 Year
  Sex: Female

DRUGS (11)
  1. DUPIXENT [Suspect]
     Active Substance: DUPILUMAB
     Indication: Asthma
     Dosage: 300 MG, QOW
     Route: 058
     Dates: start: 20210310
  2. ALBUTEROL SULFATE [Concomitant]
     Active Substance: ALBUTEROL SULFATE
  3. CICLOPIROX [Concomitant]
     Active Substance: CICLOPIROX
  4. DULOXETINE [Concomitant]
     Active Substance: DULOXETINE
  5. EPINEPHRINE [Concomitant]
     Active Substance: EPINEPHRINE
  6. METHYLPREDNISOLONE [Concomitant]
     Active Substance: METHYLPREDNISOLONE
  7. MONTELUKAST [Concomitant]
     Active Substance: MONTELUKAST
  8. PREDNISONE [Concomitant]
     Active Substance: PREDNISONE
  9. SYMBICORT [Concomitant]
     Active Substance: BUDESONIDE\FORMOTEROL FUMARATE DIHYDRATE
  10. TACROLIMUS [Concomitant]
     Active Substance: TACROLIMUS
  11. TRETINOIN [Concomitant]
     Active Substance: TRETINOIN

REACTIONS (5)
  - Impaired quality of life [Unknown]
  - Asthma [Unknown]
  - Drug ineffective [Unknown]
  - Dyspnoea [Unknown]
  - Rebound effect [Unknown]

NARRATIVE: CASE EVENT DATE: 20241012
